FAERS Safety Report 15204005 (Version 1)
Quarter: 2018Q3

REPORT INFORMATION
  Report Type: Spontaneous
  Country: CA (occurrence: CA)
  Receive Date: 20180726
  Receipt Date: 20180726
  Transmission Date: 20181010
  Serious: Yes (Life-Threatening, Hospitalization)
  Sender: FDA-Public Use
  Company Number: CA-TEVA-2018-CA-933337

PATIENT
  Age: 82 Year
  Sex: Male
  Weight: 90.8 kg

DRUGS (6)
  1. AMIODARONE [Concomitant]
     Active Substance: AMIODARONE
  2. LASIX [Concomitant]
     Active Substance: FUROSEMIDE
  3. BISOPROLOL [Concomitant]
     Active Substance: BISOPROLOL
  4. FINASTERIDE. [Suspect]
     Active Substance: FINASTERIDE
     Indication: PROSTATOMEGALY
     Route: 048
  5. MYLAN?NITRO PATCH 0.2 [Concomitant]
  6. MAVIK [Concomitant]
     Active Substance: TRANDOLAPRIL

REACTIONS (2)
  - Breast cancer male [Recovering/Resolving]
  - Mastectomy [Recovering/Resolving]
